FAERS Safety Report 6960119-8 (Version None)
Quarter: 2010Q3

REPORT INFORMATION
  Report Type: 
  Country: None (occurrence: None)
  Receive Date: 20100901
  Receipt Date: 20100819
  Transmission Date: 20110219
  Serious: Yes (Other)
  Sender: FDA-Public Use
  Company Number: PHHY2010MX22527

PATIENT
  Sex: Female

DRUGS (3)
  1. ZELMAC [Suspect]
     Indication: IRRITABLE BOWEL SYNDROME
     Dosage: 2 TABLETS (6 MG) DAILY
     Route: 048
     Dates: start: 20100227, end: 20100320
  2. OMEPRAZOLE [Concomitant]
     Indication: REFLUX GASTRITIS
     Dosage: 1 TABLET PER DAY
     Route: 048
     Dates: start: 20091201
  3. SELOKEEN ZOC [Concomitant]
     Indication: HYPERTENSION
     Dosage: 1 TABLET PER DAY

REACTIONS (7)
  - ABDOMINAL PAIN UPPER [None]
  - BLOOD PRESSURE INCREASED [None]
  - CONSTIPATION [None]
  - DIARRHOEA [None]
  - GASTRITIS [None]
  - HEADACHE [None]
  - MALAISE [None]
